FAERS Safety Report 17558190 (Version 1)
Quarter: 2020Q1

REPORT INFORMATION
  Report Type: Spontaneous
  Country: None (occurrence: US)
  Receive Date: 20200318
  Receipt Date: 20200318
  Transmission Date: 20200409
  Serious: No
  Sender: FDA-Public Use
  Company Number: US-ENDO PHARMACEUTICALS INC-2019-108594

PATIENT
  Age: 77 Year
  Sex: Female
  Weight: 78.01 kg

DRUGS (1)
  1. XIAFLEX [Suspect]
     Active Substance: COLLAGENASE CLOSTRIDIUM HISTOLYTICUM
     Indication: DUPUYTREN^S CONTRACTURE
     Dosage: UNK UNKNOWN, UNKNOWN; LEFT SMALL FINGER, MP JOINT
     Route: 026
     Dates: start: 20190826

REACTIONS (4)
  - Goitre [Unknown]
  - Erythema [Unknown]
  - Rash macular [Unknown]
  - Swelling [Unknown]

NARRATIVE: CASE EVENT DATE: 201908
